FAERS Safety Report 25816927 (Version 1)
Quarter: 2025Q3

REPORT INFORMATION
  Report Type: Spontaneous
  Country: GB (occurrence: GB)
  Receive Date: 20250918
  Receipt Date: 20250918
  Transmission Date: 20251021
  Serious: Yes (Death, Life-Threatening, Hospitalization)
  Sender: HETERO
  Company Number: GB-AMAROX PHARMA-AMR2025GB05433

PATIENT
  Sex: Male

DRUGS (1)
  1. CAPECITABINE [Suspect]
     Active Substance: CAPECITABINE
     Indication: Colon cancer stage II
     Route: 065
     Dates: start: 20221018

REACTIONS (2)
  - Colitis [Fatal]
  - Intestinal ischaemia [Fatal]
